FAERS Safety Report 25929371 (Version 1)
Quarter: 2025Q4

REPORT INFORMATION
  Report Type: Report from Study
  Country: CA (occurrence: CA)
  Receive Date: 20251016
  Receipt Date: 20251016
  Transmission Date: 20260117
  Serious: Yes (Other)
  Sender: CHIESI
  Company Number: CA-CHIESI-2024CHF06713

PATIENT
  Sex: Male
  Weight: 68 kg

DRUGS (10)
  1. DEFERIPRONE [Suspect]
     Active Substance: DEFERIPRONE
     Indication: Sickle cell disease
     Dosage: 1000 MILLIGRAM, TID
     Route: 048
     Dates: start: 20170920
  2. DEFERIPRONE [Suspect]
     Active Substance: DEFERIPRONE
     Dosage: 1500 MILLIGRAM, BID
     Route: 048
     Dates: start: 20240618
  3. DEFERIPRONE [Suspect]
     Active Substance: DEFERIPRONE
     Dosage: 500 MILLIGRAM, TID
     Route: 048
     Dates: start: 20250211
  4. DEFERIPRONE [Suspect]
     Active Substance: DEFERIPRONE
     Dosage: 500 MILLIGRAM, QD
     Route: 048
     Dates: start: 202504
  5. DEFERIPRONE [Suspect]
     Active Substance: DEFERIPRONE
     Dosage: 500 MILLIGRAM, BID
     Route: 048
     Dates: start: 20250506, end: 20250527
  6. HYDREA [Concomitant]
     Active Substance: HYDROXYUREA
     Indication: Product used for unknown indication
     Dosage: UNK
  7. HYDROXYUREA [Concomitant]
     Active Substance: HYDROXYUREA
     Indication: Sickle cell disease
     Dosage: UNK UNK, QD
     Route: 048
  8. RAMIPRIL [Concomitant]
     Active Substance: RAMIPRIL
     Indication: Microalbuminuria
     Dosage: UNK, QD
     Route: 048
  9. FINASTERIDE [Concomitant]
     Active Substance: FINASTERIDE
     Indication: Priapism
     Dosage: UNK, QD
     Route: 048
     Dates: start: 20240801
  10. ASPIRIN [Concomitant]
     Active Substance: ASPIRIN
     Indication: Cerebral small vessel ischaemic disease
     Dosage: UNK, QD
     Route: 048

REACTIONS (11)
  - Neutropenia [Unknown]
  - Gastrointestinal toxicity [Unknown]
  - Product dose omission in error [Unknown]
  - Off label use [Recovered/Resolved]
  - Off label use [Recovered/Resolved]
  - Off label use [Recovered/Resolved]
  - Off label use [Recovered/Resolved]
  - Off label use [Recovered/Resolved]
  - Off label use [Recovered/Resolved]
  - Off label use [Recovered/Resolved]
  - Off label use [Recovered/Resolved]

NARRATIVE: CASE EVENT DATE: 20170101
